FAERS Safety Report 21614282 (Version 4)
Quarter: 2023Q1

REPORT INFORMATION
  Report Type: Report from Study
  Country: DE (occurrence: DE)
  Receive Date: 20221118
  Receipt Date: 20230105
  Transmission Date: 20230418
  Serious: Yes (Hospitalization)
  Sender: FDA-Public Use
  Company Number: DE-002147023-NVSC2022DE256320

PATIENT
  Age: 25 Year
  Sex: Female
  Weight: 72 kg

DRUGS (3)
  1. CARBAMAZEPINE [Suspect]
     Active Substance: CARBAMAZEPINE
     Indication: Oral pain
     Dosage: 200 MG, ESC ( ESCALATING DOSING SCHEME: 1ST THERAPY DAY 1 TBL; 2ND DAY  2 TBL; 3RD DAY 3 TBL;4TH UNT
     Route: 048
     Dates: start: 20221014, end: 20221020
  2. PREDNISOLONE [Concomitant]
     Active Substance: PREDNISOLONE
     Indication: Product used for unknown indication
     Dosage: 60 MG
     Route: 048
     Dates: start: 20221025
  3. PREDNISOLONE [Concomitant]
     Active Substance: PREDNISOLONE
     Dosage: 40 MG
     Route: 048

REACTIONS (2)
  - Dermatitis allergic [Recovered/Resolved]
  - Rash maculo-papular [Unknown]

NARRATIVE: CASE EVENT DATE: 20221021
